FAERS Safety Report 6011143-3 (Version None)
Quarter: 2008Q4

REPORT INFORMATION
  Report Type: 
  Country: None (occurrence: None)
  Receive Date: 20081217
  Receipt Date: 20081217
  Transmission Date: 20090506
  Serious: No
  Sender: FDA-Public Use
  Company Number: None

PATIENT
  Age: 67 Year
  Sex: Female
  Weight: 52.1637 kg

DRUGS (1)
  1. GABAPENTIN [Suspect]
     Dosage: 1 CAPSULE BEDTIME MOUTH
     Route: 048
     Dates: start: 20081013, end: 20081025

REACTIONS (5)
  - DIZZINESS [None]
  - NAUSEA [None]
  - SOMNOLENCE [None]
  - TINNITUS [None]
  - TREMOR [None]
